FAERS Safety Report 4679157-3 (Version None)
Quarter: 2005Q2

REPORT INFORMATION
  Report Type: 
  Country: None (occurrence: None)
  Receive Date: 20050527
  Receipt Date: 20050215
  Transmission Date: 20051028
  Serious: No
  Sender: FDA-Public Use
  Company Number: S05-USA-00391-01

PATIENT
  Age: 45 Year
  Sex: Female

DRUGS (6)
  1. CAMPRAL [Suspect]
     Indication: ALCOHOLISM
     Dosage: 666 MG ONCE PO
     Route: 048
     Dates: start: 20050101, end: 20050101
  2. SEROQUEL [Concomitant]
  3. COZAAR [Concomitant]
  4. PROZAC [Concomitant]
  5. STRATTERA [Concomitant]
  6. REMERON [Concomitant]

REACTIONS (1)
  - ABDOMINAL PAIN [None]
